FAERS Safety Report 23407145 (Version 3)
Quarter: 2024Q1

REPORT INFORMATION
  Report Type: Report from Study
  Country: US (occurrence: US)
  Receive Date: 20240116
  Receipt Date: 20240118
  Transmission Date: 20240409
  Serious: Yes (Death)
  Sender: FDA-Public Use
  Company Number: US-ABBVIE-5590377

PATIENT
  Sex: Male
  Weight: 69 kg

DRUGS (10)
  1. VENCLEXTA [Suspect]
     Active Substance: VENETOCLAX
     Indication: Acute lymphocytic leukaemia recurrent
     Dosage: TAKE 1 TAB ONCE A DAY FOR 2 WEEKS THEN OFF FOR  2 WEEKS?FORM STRENGTH 100 MILLIGRAM
     Route: 048
  2. VENCLEXTA [Suspect]
     Active Substance: VENETOCLAX
     Indication: Acute lymphocytic leukaemia recurrent
     Dosage: 100 MG; TAKE 1 TAB ONCE A DAY FOR 14 DAYS THEN OFF FOR 14 DAYS?FORM STRENGTH 100 MILLIGRAM
     Route: 048
  3. RITUXAN [Suspect]
     Active Substance: RITUXIMAB
     Indication: Acute lymphocytic leukaemia recurrent
     Dosage: 700 MG;  LAST ADMIN DATE: 2023
     Route: 065
     Dates: start: 20231129
  4. RITUXAN [Suspect]
     Active Substance: RITUXIMAB
     Indication: Acute lymphocytic leukaemia recurrent
     Dosage: FOA:500 MG SINGLE-USE VIAL?LAST ADMIN DATE- DEC 2023,
     Route: 065
     Dates: start: 20231205
  5. RITUXAN [Suspect]
     Active Substance: RITUXIMAB
     Indication: Acute lymphocytic leukaemia recurrent
     Dosage: FOA: 100 MG SINGLE-USE VIAL
     Route: 065
     Dates: start: 20231212
  6. ALLOPURINOL [Concomitant]
     Active Substance: ALLOPURINOL
     Indication: Product used for unknown indication
  7. ENTECAVIR [Concomitant]
     Active Substance: ENTECAVIR
     Indication: Product used for unknown indication
  8. ONDANSETRON [Concomitant]
     Active Substance: ONDANSETRON
     Indication: Product used for unknown indication
  9. ACYCLOVIR [Concomitant]
     Active Substance: ACYCLOVIR
     Indication: Product used for unknown indication
  10. PANTOPRAZOLE [Concomitant]
     Active Substance: PANTOPRAZOLE
     Indication: Product used for unknown indication

REACTIONS (2)
  - Death [Fatal]
  - Off label use [Unknown]
